FAERS Safety Report 6014367-4 (Version None)
Quarter: 2008Q4

REPORT INFORMATION
  Report Type: 
  Country: None (occurrence: None)
  Receive Date: 20081219
  Receipt Date: 20080513
  Transmission Date: 20090506
  Serious: No
  Sender: FDA-Public Use
  Company Number: A0727715A

PATIENT
  Age: 90 Year
  Sex: Male

DRUGS (18)
  1. AVODART [Suspect]
     Indication: BENIGN PROSTATIC HYPERPLASIA
     Dosage: .5MG PER DAY
     Route: 048
  2. LANOXIN [Concomitant]
  3. ALLOPURINOL [Concomitant]
  4. COLCHICINE [Concomitant]
  5. LEVOTHYROXINE SODIUM [Concomitant]
  6. VITAMIN D [Concomitant]
  7. XENADERM [Concomitant]
  8. PEPCID [Concomitant]
  9. M.V.I. [Concomitant]
  10. FLOMAX [Concomitant]
  11. UNKNOWN MEDICATION [Concomitant]
  12. ZOLOFT [Concomitant]
  13. METOPROLOL TARTRATE [Concomitant]
  14. LASIX [Concomitant]
  15. ASPIRIN [Concomitant]
  16. NORVASC [Concomitant]
  17. XANAX [Concomitant]
  18. PHENERGAN HCL [Concomitant]

REACTIONS (2)
  - GASTROINTESTINAL DISORDER [None]
  - MEDICATION RESIDUE [None]
